FAERS Safety Report 10275329 (Version 1)
Quarter: 2014Q2

REPORT INFORMATION
  Report Type: Spontaneous
  Country: US (occurrence: None)
  Receive Date: 20140630
  Receipt Date: 20140630
  Transmission Date: 20141212
  Serious: Yes (Other)
  Sender: FDA-Public Use
  Company Number: None

PATIENT
  Age: 43 Year
  Sex: Male
  Weight: 110.68 kg

DRUGS (1)
  1. QSYMIA [Suspect]
     Indication: OBESITY
     Dosage: 1 DAILY, QD, ORAL
     Route: 048

REACTIONS (1)
  - Visual acuity reduced [None]
